FAERS Safety Report 25534735 (Version 3)
Quarter: 2025Q3

REPORT INFORMATION
  Report Type: Report from Study
  Country: US (occurrence: US)
  Receive Date: 20250709
  Receipt Date: 20250728
  Transmission Date: 20251021
  Serious: Yes (Hospitalization)
  Sender: ABBVIE
  Company Number: US-ABBVIE-6361986

PATIENT
  Sex: Male

DRUGS (3)
  1. VENCLEXTA [Suspect]
     Active Substance: VENETOCLAX
     Indication: Mantle cell lymphoma
     Route: 048
     Dates: start: 202506
  2. VENCLEXTA [Suspect]
     Active Substance: VENETOCLAX
     Indication: Mantle cell lymphoma
     Route: 048
     Dates: start: 20250717
  3. JAYPIRCA [Suspect]
     Active Substance: PIRTOBRUTINIB
     Indication: Product used for unknown indication
     Route: 065

REACTIONS (5)
  - Dizziness [Unknown]
  - Chills [Unknown]
  - Petechiae [Unknown]
  - Feeling hot [Unknown]
  - Off label use [Unknown]

NARRATIVE: CASE EVENT DATE: 20250101
